FAERS Safety Report 5366243-8 (Version None)
Quarter: 2007Q2

REPORT INFORMATION
  Report Type: 
  Country: None (occurrence: None)
  Receive Date: 20070621
  Receipt Date: 20070621
  Transmission Date: 20071010
  Serious: Yes (Other)
  Sender: FDA-Public Use
  Company Number: None

PATIENT
  Age: 16 Year
  Sex: Female
  Weight: 47.6277 kg

DRUGS (6)
  1. B-COMPLEX DIETARY SUPPLEMENT; YOURLIFE (LEINER HEALTH PRODUCTS,LLC) [Suspect]
     Indication: ANAEMIA
     Dosage: MULTI DAILY ORALLY TOOK WHITE TAB ONLY ONE TIME
     Route: 048
  2. B-COMPLEX DIETARY SUPPLEMENT; YOURLIFE (LEINER HEALTH PRODUCTS,LLC) [Suspect]
     Indication: HYPERHIDROSIS
     Dosage: MULTI DAILY ORALLY TOOK WHITE TAB ONLY ONE TIME
     Route: 048
  3. PROZAC [Concomitant]
  4. NEURONTIN [Concomitant]
  5. ALESSE [Concomitant]
  6. COMPLETE VITAMIN (OTC) [Concomitant]

REACTIONS (8)
  - CRYING [None]
  - DEPRESSED MOOD [None]
  - FATIGUE [None]
  - HEADACHE [None]
  - LETHARGY [None]
  - NAUSEA [None]
  - PHARMACEUTICAL PRODUCT COMPLAINT [None]
  - TREMOR [None]
